FAERS Safety Report 12321128 (Version 3)
Quarter: 2016Q2

REPORT INFORMATION
  Report Type: Report from Study
  Country: US (occurrence: US)
  Receive Date: 20160502
  Receipt Date: 20160601
  Transmission Date: 20160815
  Serious: No
  Sender: FDA-Public Use
  Company Number: US-AMGEN-USASP2016053432

PATIENT
  Age: 59 Year
  Sex: Female

DRUGS (3)
  1. ENBREL [Suspect]
     Active Substance: ETANERCEPT
     Indication: RHEUMATOID ARTHRITIS
     Dosage: 50 MG, ONCE A WEEK
     Route: 065
     Dates: start: 20140802
  2. ENBREL [Suspect]
     Active Substance: ETANERCEPT
     Indication: OSTEOARTHRITIS
  3. ENBREL [Suspect]
     Active Substance: ETANERCEPT
     Indication: RAYNAUD^S PHENOMENON

REACTIONS (12)
  - Hyperacusis [Unknown]
  - Insomnia [Unknown]
  - Drug dose omission [Unknown]
  - Device issue [Unknown]
  - Wrong technique in product usage process [Unknown]
  - Discomfort [Unknown]
  - Inappropriate schedule of drug administration [Unknown]
  - Irritability [Unknown]
  - Anxiety [Unknown]
  - Limb discomfort [Unknown]
  - Tooth disorder [Unknown]
  - Injection site reaction [Unknown]

NARRATIVE: CASE EVENT DATE: 2015
